FAERS Safety Report 5215994-4 (Version None)
Quarter: 2007Q1

REPORT INFORMATION
  Report Type: 
  Country: None (occurrence: None)
  Receive Date: 20070118
  Receipt Date: 20070104
  Transmission Date: 20070707
  Serious: Yes (Hospitalization)
  Sender: FDA-Public Use
  Company Number: 234619

PATIENT
  Age: 63 Year
  Sex: Male

DRUGS (2)
  1. RAPTIVA [Suspect]
     Indication: PSORIASIS
     Dates: start: 20061201
  2. FLAGYL [Concomitant]

REACTIONS (2)
  - CONDITION AGGRAVATED [None]
  - DIVERTICULITIS [None]
